FAERS Safety Report 19661956 (Version 1)
Quarter: 2021Q3

REPORT INFORMATION
  Report Type: Spontaneous
  Country: US (occurrence: US)
  Receive Date: 20210805
  Receipt Date: 20210805
  Transmission Date: 20211014
  Serious: Yes (Other)
  Sender: FDA-Public Use
  Company Number: US-ACCORD-206162

PATIENT
  Age: 70 Year
  Sex: Female
  Weight: 81.83 kg

DRUGS (13)
  1. CYANOCOBALAMIN. [Concomitant]
     Active Substance: CYANOCOBALAMIN
     Dosage: STRENGTH:1,000 MCG, 1 PO QD
     Dates: start: 20201007
  2. FLUTICASONE. [Concomitant]
     Active Substance: FLUTICASONE
     Dosage: STRENGTH:50 MCG/ACTUATION NASAL, SPRAY, SUSPENSION, 2SPRAYS AM
     Dates: start: 20201007
  3. MONTELUKAST/MONTELUKAST SODIUM [Concomitant]
     Active Substance: MONTELUKAST\MONTELUKAST SODIUM
     Dosage: STRENGTH:10 MG, 1 PO QD
     Dates: start: 20201007
  4. PEGFILGRASTIM [Concomitant]
     Active Substance: PEGFILGRASTIM
     Dosage: STRENGTH:6 MG/0.6 ML,SYRINGE, 1MILLI L, INJECTION TO BE GIVEN WITHIN 72 HOURS
     Route: 058
     Dates: start: 20201007
  5. FULPHILA [Concomitant]
     Active Substance: PEGFILGRASTIM-JMDB
     Dosage: STRENGTH:6 MG/0.6 ML, SYRINGE,1 MILLILITERS, SQ DAY AFTER CHEMOTHERAPYDX
     Route: 058
     Dates: start: 20201028
  6. ONDANSETRON/ONDANSETRON HYDROCHLORIDE [Concomitant]
     Active Substance: ONDANSETRON HYDROCHLORIDE
     Dosage: STRENGTH:8 MG,ONE ODT TABLET EVERY 8 HOURS AS NEEDED FOR NAUSEA/ VOMITING
     Dates: start: 20200922
  7. AZELASTINE/AZELASTINE HYDROCHLORIDE [Concomitant]
     Dosage: STRENGTH:137 MCG (0.1 %), EXTERNAL, 2SPRAYS PM
     Dates: start: 20201007
  8. DEXAMETHASONE. [Concomitant]
     Active Substance: DEXAMETHASONE
     Dosage: STRENGTH:4 MG, TAKE DEXAMETHASONE 8 MG PO BID FOR 3 DAYS BEGINNING 1 DAY PRIO
     Dates: start: 20200922
  9. SYMBICORT [Concomitant]
     Active Substance: BUDESONIDE\FORMOTEROL FUMARATE DIHYDRATE
     Dosage: STRENGTH:160/4.5 MCG(120 ORAL INH), INL 2 PFS ITL BID
     Dates: start: 20200128
  10. COLECALCIFEROL [Concomitant]
     Active Substance: CHOLECALCIFEROL
     Dosage: STRENGTH:125 MCG (5,000 UNIT) ,1 PO QD
     Dates: start: 20201007
  11. DOCETAXEL ACCORD [Suspect]
     Active Substance: DOCETAXEL
     Indication: BREAST CANCER
     Dosage: STRENGTH: 20MG/ML
     Route: 042
     Dates: start: 20201007, end: 20201007
  12. FEXOFENADINE [Concomitant]
     Active Substance: FEXOFENADINE HYDROCHLORIDE
     Dosage: STRENGTH:180 MG, 1 PO QD
     Dates: start: 20201007
  13. OSTEO BI?FLEX [Concomitant]
     Active Substance: CHONDROITIN SULFATE A\GLUCOSAMINE
     Dosage: STRENGTH:250 MG?200 MG, 2 PO QD
     Dates: start: 20201007

REACTIONS (1)
  - Dyspnoea [Recovered/Resolved]

NARRATIVE: CASE EVENT DATE: 20201007
